FAERS Safety Report 4552464-0 (Version None)
Quarter: 2005Q1

REPORT INFORMATION
  Report Type: 
  Country: None (occurrence: None)
  Receive Date: 20050114
  Receipt Date: 20040810
  Transmission Date: 20050727
  Serious: Yes (Disabling)
  Sender: FDA-Public Use
  Company Number: US-BRISTOL-MYERS SQUIBB COMPANY-12666210

PATIENT
  Age: 68 Year
  Sex: Male

DRUGS (6)
  1. CISPLATIN [Suspect]
     Indication: MESOTHELIOMA
     Route: 042
     Dates: start: 20040701, end: 20040701
  2. ALIMTA [Suspect]
     Indication: MESOTHELIOMA
     Dates: start: 20040704, end: 20040701
  3. VITAMIN B-12 [Concomitant]
     Route: 030
     Dates: start: 20040601
  4. FOLIC ACID [Concomitant]
     Route: 048
     Dates: start: 20040601
  5. DEXAMETHASONE [Concomitant]
     Route: 042
     Dates: start: 20040609
  6. VITAMIN B6 [Concomitant]

REACTIONS (1)
  - PERONEAL NERVE PALSY [None]
